FAERS Safety Report 8253505-X (Version None)
Quarter: 2012Q2

REPORT INFORMATION
  Report Type: 
  Country: None (occurrence: None)
  Receive Date: 20120402
  Receipt Date: 20120305
  Transmission Date: 20120825
  Serious: No
  Sender: FDA-Public Use
  Company Number: US-AMGEN-USASP2012014903

PATIENT
  Sex: Female

DRUGS (4)
  1. PROZAC [Concomitant]
     Dosage: UNK
  2. ENBREL [Suspect]
     Indication: PSORIASIS
     Dosage: UNK
     Dates: start: 20120228
  3. SYNTHROID [Concomitant]
     Dosage: UNK
  4. KLONOPIN [Concomitant]
     Dosage: UNK

REACTIONS (5)
  - FATIGUE [None]
  - DYSPNOEA [None]
  - PAIN IN EXTREMITY [None]
  - HEART RATE INCREASED [None]
  - HEADACHE [None]
